FAERS Safety Report 6523430-0 (Version None)
Quarter: 2009Q4

REPORT INFORMATION
  Report Type: 
  Country: None (occurrence: None)
  Receive Date: 20091214
  Receipt Date: 20090706
  Transmission Date: 20100525
  Serious: Yes (Other)
  Sender: FDA-Public Use
  Company Number: 635081

PATIENT
  Age: 61 Year
  Sex: Male

DRUGS (2)
  1. PEG-INTERFERON A-2A (RD 25-8310) (PEG-INTERFERON ALFA 2A) [Suspect]
     Indication: HEPATITIS C
     Dosage: 180 UG 1 PER WEEK SUBCUTANEOUS
     Route: 058
     Dates: start: 20090419
  2. RIBAVIRIN [Suspect]
     Indication: HEPATITIS C
     Dosage: 800 MG DAILY
     Dates: start: 20090419

REACTIONS (12)
  - ANAEMIA [None]
  - DIARRHOEA HAEMORRHAGIC [None]
  - DISTURBANCE IN ATTENTION [None]
  - DYSPNOEA [None]
  - FATIGUE [None]
  - HYPOAESTHESIA [None]
  - INJECTION SITE REACTION [None]
  - PARAESTHESIA [None]
  - PRURITUS [None]
  - RED BLOOD CELL COUNT DECREASED [None]
  - SKIN LESION [None]
  - WHITE BLOOD CELL COUNT DECREASED [None]
